FAERS Safety Report 9781086 (Version 1)
Quarter: 2013Q4

REPORT INFORMATION
  Report Type: Spontaneous
  Country: US (occurrence: US)
  Receive Date: 20131224
  Receipt Date: 20131224
  Transmission Date: 20140711
  Serious: Yes (Other)
  Sender: FDA-Public Use
  Company Number: 2013SP003685

PATIENT
  Age: 59 Year
  Sex: Female
  Weight: 98 kg

DRUGS (4)
  1. LATUDA [Suspect]
     Indication: SCHIZOPHRENIA
     Route: 048
     Dates: start: 20130322, end: 20131203
  2. VALPROIC ACID [Concomitant]
  3. INVEGA SUSTENNA [Concomitant]
  4. GEODON                             /01487002/ [Concomitant]

REACTIONS (1)
  - Neutropenia [Recovered/Resolved]
